FAERS Safety Report 25406761 (Version 2)
Quarter: 2025Q3

REPORT INFORMATION
  Report Type: Spontaneous
  Country: JP (occurrence: JP)
  Receive Date: 20250606
  Receipt Date: 20250909
  Transmission Date: 20251021
  Serious: Yes (Hospitalization, Other)
  Sender: BRISTOL-MYERS SQUIBB COMPANY
  Company Number: JP-ONO-2025JP009268

PATIENT
  Sex: Male
  Weight: 60.4 kg

DRUGS (10)
  1. OPDIVO [Suspect]
     Active Substance: NIVOLUMAB
     Indication: Porocarcinoma
     Dates: start: 20250327, end: 20250410
  2. ACETAMINOPHEN [Concomitant]
     Active Substance: ACETAMINOPHEN
     Indication: Product used for unknown indication
     Dates: start: 20250403
  3. AZUNOL [Concomitant]
     Indication: Product used for unknown indication
     Dosage: UNK, EVERYDAY, APPLICATION TO THE CHEST AREA AFTER IRRADIATION
     Dates: start: 20250409
  4. MYSER [Concomitant]
     Indication: Product used for unknown indication
     Dosage: UNK, Q12H, APPLICATION TO SEVERELY AFFECTED AREAS
     Dates: start: 20250409
  5. TERRA-CORTRIL [Concomitant]
     Active Substance: HYDROCORTISONE ACETATE\OXYTETRACYCLINE HYDROCHLORIDE
     Indication: Product used for unknown indication
     Dosage: UNK, EVERYDAY, APPLICATION TO THE RIGHT FLANK
     Dates: start: 20250418
  6. OXYCODONE HYDROCHLORIDE [Concomitant]
     Active Substance: OXYCODONE HYDROCHLORIDE
     Indication: Product used for unknown indication
     Dosage: 5 MG, Q12H
     Dates: start: 20250418
  7. OXINORM [Concomitant]
     Indication: Product used for unknown indication
     Dates: start: 20250422
  8. SYMPROIC [Concomitant]
     Active Substance: NALDEMEDINE TOSYLATE
     Indication: Product used for unknown indication
     Dosage: 0.2 MG, EVERYDAY
     Dates: start: 20250418
  9. MAGNESIUM OXIDE [Concomitant]
     Active Substance: MAGNESIUM OXIDE
     Indication: Product used for unknown indication
     Dosage: 330 MG, Q8H
     Dates: start: 20250422
  10. NOVAMIN [Concomitant]
     Indication: Product used for unknown indication
     Dates: start: 20250418

REACTIONS (19)
  - Decreased appetite [Recovering/Resolving]
  - Nausea [Recovering/Resolving]
  - Vomiting [Recovering/Resolving]
  - Malaise [Recovered/Resolved]
  - Eyelid ptosis [Recovering/Resolving]
  - Lip disorder [Unknown]
  - Troponin I increased [Unknown]
  - Blood lactate dehydrogenase increased [Unknown]
  - Bundle branch block right [Recovered/Resolved]
  - Cardiomyopathy [Unknown]
  - Immune-mediated myocarditis [Recovering/Resolving]
  - Myasthenia gravis [Recovering/Resolving]
  - Immune-mediated hepatitis [Unknown]
  - Blood creatine phosphokinase increased [Unknown]
  - Aspartate aminotransferase increased [Unknown]
  - Alanine aminotransferase increased [Unknown]
  - Immune-mediated myositis [Unknown]
  - Dysphagia [Unknown]
  - Off label use [Unknown]

NARRATIVE: CASE EVENT DATE: 20250404
